FAERS Safety Report 7549749-2 (Version None)
Quarter: 2011Q2

REPORT INFORMATION
  Report Type: 
  Country: None (occurrence: None)
  Receive Date: 20110615
  Receipt Date: 20051222
  Transmission Date: 20111010
  Serious: Yes (Other)
  Sender: FDA-Public Use
  Company Number: PHFR2005GB03281

PATIENT
  Sex: Male

DRUGS (2)
  1. CLOZAPINE [Suspect]
     Indication: SCHIZOPHRENIA
     Route: 048
     Dates: start: 20030620
  2. PEGINTERFERON ALFA-2B [Suspect]
     Indication: HEPATITIS C
     Dosage: 150 UG, QW
     Dates: start: 20050801

REACTIONS (6)
  - HAEMOGLOBIN DECREASED [None]
  - HEPATITIS C [None]
  - INFLUENZA LIKE ILLNESS [None]
  - NEUTROPHIL COUNT DECREASED [None]
  - MYALGIA [None]
  - WHITE BLOOD CELL COUNT DECREASED [None]
